FAERS Safety Report 9969863 (Version 1)
Quarter: 2014Q1

REPORT INFORMATION
  Report Type: Spontaneous
  Country: US (occurrence: US)
  Receive Date: 20140306
  Receipt Date: 20140306
  Transmission Date: 20141002
  Serious: Yes (Other)
  Sender: FDA-Public Use
  Company Number: US-GE HEALTHCARE MEDICAL DIAGNOSTICS-VISP-PR-1402S-0072

PATIENT
  Age: 62 Year
  Sex: Female
  Weight: 86.71 kg

DRUGS (5)
  1. VISIPAQUE [Suspect]
     Indication: CARCINOID TUMOUR
     Route: 042
     Dates: start: 20140113, end: 20140113
  2. VISIPAQUE [Suspect]
     Indication: DIAGNOSTIC PROCEDURE
  3. INSULIN ASPART [Concomitant]
     Indication: DIABETES MELLITUS
     Dosage: 18/18/20 UNITS
     Route: 058
     Dates: start: 20110119
  4. INSULIN GLARGINE [Concomitant]
     Indication: DIABETES MELLITUS
     Route: 058
     Dates: start: 20120813
  5. OCTREOTIDE [Concomitant]
     Indication: CARCINOID TUMOUR
     Route: 030
     Dates: start: 20111229

REACTIONS (1)
  - Hypersensitivity [Recovered/Resolved]
